FAERS Safety Report 7174995-X (Version None)
Quarter: 2010Q4

REPORT INFORMATION
  Report Type: 
  Country: None (occurrence: None)
  Receive Date: 20101220
  Receipt Date: 20100409
  Transmission Date: 20110411
  Serious: No
  Sender: FDA-Public Use
  Company Number: US-AMGEN-TCS404828

PATIENT

DRUGS (2)
  1. ENBREL [Suspect]
     Indication: RHEUMATOID ARTHRITIS
     Dosage: 50 MG, QWK
     Route: 058
     Dates: start: 20080802
  2. LEFLUNOMIDE [Concomitant]
     Dosage: 20 MG, QD

REACTIONS (5)
  - DECREASED APPETITE [None]
  - MUSCULOSKELETAL PAIN [None]
  - PERIPHERAL COLDNESS [None]
  - SKIN MASS [None]
  - WEIGHT DECREASED [None]
